FAERS Safety Report 18745944 (Version 7)
Quarter: 2022Q4

REPORT INFORMATION
  Report Type: Report from Study
  Country: CA (occurrence: CA)
  Receive Date: 20210115
  Receipt Date: 20221028
  Transmission Date: 20230112
  Serious: Yes (Other)
  Sender: FDA-Public Use
  Company Number: CA-TAKEDA-2020TUS054009

PATIENT
  Age: 56 Year
  Sex: Male

DRUGS (6)
  1. VEDOLIZUMAB [Suspect]
     Active Substance: VEDOLIZUMAB
     Indication: Crohn^s disease
     Dosage: 300 MILLIGRAM
     Route: 042
     Dates: start: 20200910
  2. VEDOLIZUMAB [Suspect]
     Active Substance: VEDOLIZUMAB
     Dosage: 300 MILLIGRAM, Q4WEEKS
     Route: 042
     Dates: start: 20210208
  3. VEDOLIZUMAB [Suspect]
     Active Substance: VEDOLIZUMAB
     Dosage: 300 MILLIGRAM, Q4WEEKS
     Route: 042
     Dates: end: 20211201
  4. ENTOCORT [Concomitant]
     Active Substance: BUDESONIDE
     Dosage: 9 MILLIGRAM, QD
     Dates: start: 202004
  5. ENTOCORT [Concomitant]
     Active Substance: BUDESONIDE
     Dosage: 9 MILLIGRAM, QD
     Dates: start: 202007
  6. ROSUVASTATIN [Concomitant]
     Active Substance: ROSUVASTATIN
     Dosage: UNK

REACTIONS (3)
  - Crohn^s disease [Not Recovered/Not Resolved]
  - Arthralgia [Unknown]
  - Off label use [Unknown]

NARRATIVE: CASE EVENT DATE: 20210208
